FAERS Safety Report 15579289 (Version 2)
Quarter: 2019Q2

REPORT INFORMATION
  Report Type: Spontaneous
  Country: US (occurrence: US)
  Receive Date: 20181102
  Receipt Date: 20190419
  Transmission Date: 20190711
  Serious: No
  Sender: FDA-Public Use
  Company Number: US-SA-2018SA301140

PATIENT
  Sex: Male

DRUGS (3)
  1. MIRALAX [Concomitant]
     Active Substance: POLYETHYLENE GLYCOL 3350
  2. DULCOLAX (BISACODYL) [Suspect]
     Active Substance: BISACODYL
  3. DULCOLAX (BISACODYL) [Suspect]
     Active Substance: BISACODYL
     Dosage: UNK
     Dates: start: 20190417

REACTIONS (2)
  - Swelling [Unknown]
  - Product use issue [Unknown]
